FAERS Safety Report 12737525 (Version 1)
Quarter: 2016Q3

REPORT INFORMATION
  Report Type: Spontaneous
  Country: NL (occurrence: NL)
  Receive Date: 20160912
  Receipt Date: 20160912
  Transmission Date: 20161109
  Serious: Yes (Other)
  Sender: FDA-Public Use
  Company Number: NL-PFIZER INC-2016421474

PATIENT
  Age: 1 Year
  Sex: Female
  Weight: 12 kg

DRUGS (1)
  1. CLINDAMYCIN [Suspect]
     Active Substance: CLINDAMYCIN\CLINDAMYCIN PHOSPHATE
     Indication: EAR INFECTION
     Dosage: 7.2 ML, 3X/DAY
     Route: 048
     Dates: start: 20160826

REACTIONS (3)
  - Abnormal faeces [Unknown]
  - Faeces discoloured [Unknown]
  - Melaena [Unknown]

NARRATIVE: CASE EVENT DATE: 20160828
